FAERS Safety Report 12327128 (Version 1)
Quarter: 2016Q2

REPORT INFORMATION
  Report Type: Spontaneous
  Country: US (occurrence: None)
  Receive Date: 20160502
  Receipt Date: 20160502
  Transmission Date: 20160815
  Serious: No
  Sender: FDA-Public Use
  Company Number: None

PATIENT
  Age: 32 Year
  Sex: Male

DRUGS (1)
  1. SPRYCEL [Suspect]
     Active Substance: DASATINIB
     Indication: CHRONIC MYELOID LEUKAEMIA
     Route: 048
     Dates: start: 20150429

REACTIONS (5)
  - Fatigue [None]
  - Dizziness [None]
  - Headache [None]
  - Rash [None]
  - Impaired work ability [None]

NARRATIVE: CASE EVENT DATE: 20150429
